FAERS Safety Report 7021725-8 (Version None)
Quarter: 2010Q3

REPORT INFORMATION
  Report Type: 
  Country: None (occurrence: None)
  Receive Date: 20100930
  Receipt Date: 20100920
  Transmission Date: 20110219
  Serious: Yes (Hospitalization, Other)
  Sender: FDA-Public Use
  Company Number: US-BIOGENIDEC-2010BI030650

PATIENT
  Age: 60 Year
  Sex: Female
  Weight: 79 kg

DRUGS (6)
  1. AVONEX [Suspect]
     Indication: MULTIPLE SCLEROSIS
     Route: 030
  2. AVONEX [Suspect]
     Route: 030
  3. SOLU-MEDROL [Concomitant]
     Indication: MULTIPLE SCLEROSIS
  4. ANTIHYPERTENSIVE (NOS) [Concomitant]
     Indication: HYPERTENSION
  5. METOPROLOL TARTRATE [Concomitant]
     Indication: HYPERTENSION
     Route: 042
     Dates: start: 20100601, end: 20100601
  6. MEDICATION (NOS) [Concomitant]
     Indication: HYPERLIPIDAEMIA

REACTIONS (11)
  - BARRETT'S OESOPHAGUS [None]
  - CHEST DISCOMFORT [None]
  - CONTUSION [None]
  - HAEMATEMESIS [None]
  - LEUKOCYTOSIS [None]
  - MALAISE [None]
  - NAUSEA [None]
  - OESOPHAGEAL CARCINOMA [None]
  - OESOPHAGITIS [None]
  - SINUS TACHYCARDIA [None]
  - VOMITING [None]
